FAERS Safety Report 8783034 (Version 2)
Quarter: 2012Q4

REPORT INFORMATION
  Report Type: 
  Country: US (occurrence: US)
  Receive Date: 20120913
  Receipt Date: 20121005
  Transmission Date: 20130627
  Serious: Yes (Life-Threatening, Hospitalization, Other)
  Sender: FDA-Public Use
  Company Number: US-BRISTOL-MYERS SQUIBB COMPANY-16949976

PATIENT
  Age: 69 Year
  Sex: Male

DRUGS (2)
  1. YERVOY [Suspect]
     Indication: MALIGNANT MELANOMA
     Dosage: 1df=200mg/40mL,2nd on 08Aug12
recent dose 31Aug12
     Route: 042
     Dates: start: 20120718
  2. DACARBAZINE [Suspect]
     Dosage: DTIC
     Dates: start: 201207

REACTIONS (3)
  - Respiratory distress [Unknown]
  - Malignant neoplasm progression [Unknown]
  - Skin lesion [Unknown]
